FAERS Safety Report 24911598 (Version 2)
Quarter: 2025Q1

REPORT INFORMATION
  Report Type: Spontaneous
  Country: US (occurrence: US)
  Receive Date: 20250131
  Receipt Date: 20250305
  Transmission Date: 20250408
  Serious: No
  Sender: PFIZER
  Company Number: US-PFIZER INC-202500020218

PATIENT
  Age: 7 Year
  Sex: Male

DRUGS (2)
  1. GENOTROPIN [Suspect]
     Active Substance: SOMATROPIN
     Dosage: 0.7 MG, ALTERNATE DAY (0.7 ALTERNATING WITH 0.8 DAILY)
     Dates: start: 20250101
  2. GENOTROPIN [Suspect]
     Active Substance: SOMATROPIN
     Dosage: 0.8 MG, ALTERNATE DAY (0.7 ALTERNATING WITH 0.8 DAILY)
     Dates: start: 20250101

REACTIONS (1)
  - Injection site discharge [Unknown]
